FAERS Safety Report 18847267 (Version 2)
Quarter: 2021Q2

REPORT INFORMATION
  Report Type: Spontaneous
  Country: US (occurrence: US)
  Receive Date: 20210204
  Receipt Date: 20210504
  Transmission Date: 20210717
  Serious: No
  Sender: FDA-Public Use
  Company Number: US-MYLANLABS-2021M1006994

PATIENT
  Sex: Female
  Weight: 48 kg

DRUGS (1)
  1. EPINEPHRINE INJECTION USP AUTO?INJECTOR [Suspect]
     Active Substance: EPINEPHRINE
     Indication: ANAPHYLACTIC REACTION
     Dosage: 0.3 MILLIGRAM, PRN (AS NEEDED)
     Route: 030
     Dates: start: 20210116

REACTIONS (2)
  - Product quality issue [None]
  - Product colour issue [None]

NARRATIVE: CASE EVENT DATE: 2021
